FAERS Safety Report 5365203-0 (Version None)
Quarter: 2007Q2

REPORT INFORMATION
  Report Type: 
  Country: None (occurrence: None)
  Receive Date: 20070621
  Receipt Date: 20070611
  Transmission Date: 20071010
  Serious: Yes (Hospitalization)
  Sender: FDA-Public Use
  Company Number: HQWYE562111JUN07

PATIENT
  Sex: Male

DRUGS (13)
  1. SIROLIMUS [Suspect]
     Indication: PROPHYLAXIS AGAINST TRANSPLANT REJECTION
     Dosage: 2 MG DAILY
     Route: 048
     Dates: start: 20060920, end: 20060926
  2. CYCLOSPORINE [Concomitant]
     Indication: PROPHYLAXIS AGAINST TRANSPLANT REJECTION
     Dosage: UNSPECIFIED
     Route: 048
  3. BACTRIM [Concomitant]
     Dosage: UNSPECIFIED
     Dates: start: 20060816
  4. EFFEXOR [Concomitant]
     Dosage: UNSPECIFIED
     Dates: start: 20060819
  5. REMERON [Concomitant]
     Dosage: UNSPECIFIED
     Dates: start: 20060821
  6. RESTORIL [Concomitant]
     Dosage: UNSPECIFIED
     Dates: start: 20060823
  7. CALCIUM PHOSPHATE/CALCIUM SODIUM LACTATE/ERGOCALCIFEROL [Concomitant]
     Dosage: UNSPECIFIED
     Dates: start: 20060823
  8. KEFLEX [Concomitant]
     Dosage: UNSPECIFIED
     Dates: start: 20060919, end: 20061001
  9. LEVAQUIN [Concomitant]
     Dosage: UNSPECIFIED
     Dates: start: 20060922, end: 20060929
  10. INSULIN [Concomitant]
     Dosage: UNSPECIFIED
     Dates: start: 20060816
  11. NORCO [Concomitant]
     Dosage: UNSPECIFIED
     Dates: start: 20060815
  12. MYCOPHENOLATE MOFETIL [Concomitant]
     Indication: PROPHYLAXIS AGAINST TRANSPLANT REJECTION
     Route: 048
     Dates: start: 20060816
  13. MULTI-VITAMINS [Concomitant]
     Dosage: UNSPECIFIED
     Dates: start: 20060823

REACTIONS (1)
  - LIVER TRANSPLANT REJECTION [None]
